FAERS Safety Report 23572909 (Version 1)
Quarter: 2024Q1

REPORT INFORMATION
  Report Type: Report from Study
  Country: US (occurrence: US)
  Receive Date: 20240227
  Receipt Date: 20240227
  Transmission Date: 20240410
  Serious: Yes (Hospitalization)
  Sender: FDA-Public Use
  Company Number: US-ABBVIE-5652830

PATIENT
  Sex: Female

DRUGS (1)
  1. BOTOX [Suspect]
     Active Substance: ONABOTULINUMTOXINA
     Indication: Migraine
     Dosage: TIME INTERVAL: AS NECESSARY
     Route: 065

REACTIONS (5)
  - Eyelid ptosis [Unknown]
  - Ocular discomfort [Unknown]
  - Vision blurred [Unknown]
  - Dizziness [Unknown]
  - Dysphagia [Unknown]

NARRATIVE: CASE EVENT DATE: 20240216
